FAERS Safety Report 12835425 (Version 2)
Quarter: 2017Q1

REPORT INFORMATION
  Report Type: Spontaneous
  Country: US (occurrence: US)
  Receive Date: 20161011
  Receipt Date: 20170306
  Transmission Date: 20170428
  Serious: Yes (Other)
  Sender: FDA-Public Use
  Company Number: US-TEVA-676434USA

PATIENT
  Age: 49 Year
  Sex: Female

DRUGS (12)
  1. ZECUITY [Suspect]
     Active Substance: SUMATRIPTAN SUCCINATE
     Dosage: 6.5MG/4 HOURS
     Route: 062
     Dates: start: 20160701, end: 20160701
  2. FROVA [Concomitant]
     Active Substance: FROVATRIPTAN SUCCINATE
  3. TRINTELLIX [Concomitant]
     Active Substance: VORTIOXETINE HYDROBROMIDE
  4. PROZAC [Concomitant]
     Active Substance: FLUOXETINE HYDROCHLORIDE
  5. VRAYLAR [Concomitant]
     Active Substance: CARIPRAZINE
  6. OPANA ER [Concomitant]
     Active Substance: OXYMORPHONE HYDROCHLORIDE
  7. CLONAPIN [Concomitant]
     Active Substance: CLONAZEPAM
  8. OXYMORPHONE [Concomitant]
     Active Substance: OXYMORPHONE
  9. ZECUITY [Suspect]
     Active Substance: SUMATRIPTAN SUCCINATE
     Indication: MIGRAINE
     Dosage: 6.5MG/4 HOURS
     Route: 062
     Dates: start: 201606, end: 201606
  10. TIZANIDINE. [Concomitant]
     Active Substance: TIZANIDINE
  11. IMITREX [Concomitant]
     Active Substance: SUMATRIPTAN SUCCINATE
  12. ZOFRAN [Concomitant]
     Active Substance: ONDANSETRON HYDROCHLORIDE

REACTIONS (3)
  - Application site vesicles [Recovered/Resolved]
  - Thermal burn [Recovered/Resolved]
  - Application site erythema [Recovered/Resolved]

NARRATIVE: CASE EVENT DATE: 2016
